FAERS Safety Report 4373537-1 (Version None)
Quarter: 2004Q1

REPORT INFORMATION
  Report Type: 
  Country: None (occurrence: None)
  Receive Date: 20040305
  Receipt Date: 20031111
  Transmission Date: 20041129
  Serious: Yes (Other)
  Sender: FDA-Public Use
  Company Number: 2003UW14760

PATIENT

DRUGS (5)
  1. CRESTOR [Suspect]
     Dosage: 10 MG QD PO/8N WEEKS
     Route: 048
  2. NEXIUM [Suspect]
     Dosage: 40 MG QD PO
     Route: 048
  3. CLARINEX [Concomitant]
  4. CELEBREX [Concomitant]
  5. NO MATCH [Concomitant]

REACTIONS (1)
  - BLOOD TRIGLYCERIDES INCREASED [None]
